FAERS Safety Report 6376061-X (Version None)
Quarter: 2009Q3

REPORT INFORMATION
  Report Type: 
  Country: None (occurrence: None)
  Receive Date: 20090921
  Receipt Date: 20090908
  Transmission Date: 20100115
  Serious: Yes (Hospitalization)
  Sender: FDA-Public Use
  Company Number: 230008M09AUS

PATIENT
  Sex: Female

DRUGS (2)
  1. REBIF [Suspect]
     Indication: RELAPSING-REMITTING MULTIPLE SCLEROSIS
     Dates: start: 20050101, end: 20090101
  2. OROXINE (LEVOTHYROXINE SODIUM) [Concomitant]

REACTIONS (1)
  - CARDIAC FAILURE ACUTE [None]
